FAERS Safety Report 6270642-X (Version None)
Quarter: 2009Q3

REPORT INFORMATION
  Report Type: 
  Country: None (occurrence: None)
  Receive Date: 20090716
  Receipt Date: 20090707
  Transmission Date: 20100115
  Serious: Yes (Hospitalization)
  Sender: FDA-Public Use
  Company Number: CN-NOVOPROD-289133

PATIENT
  Age: 58 Year
  Sex: Female

DRUGS (1)
  1. NOVORAPID PENFILL [Suspect]
     Indication: DIABETES MELLITUS

REACTIONS (3)
  - CARDIAC DISORDER [None]
  - INJECTION SITE URTICARIA [None]
  - PRURITUS [None]
